FAERS Safety Report 10686037 (Version 3)
Quarter: 2015Q1

REPORT INFORMATION
  Report Type: Spontaneous
  Country: US (occurrence: US)
  Receive Date: 20141231
  Receipt Date: 20150327
  Transmission Date: 20150720
  Serious: Yes (Hospitalization, Congenital Anomaly, Other)
  Sender: FDA-Public Use
  Company Number: US-APOTEX-2014AP006409

PATIENT
  Age: 0 Day
  Sex: Male

DRUGS (3)
  1. PRENATAL VITAMINS                  /07426201/ [Concomitant]
     Active Substance: ASCORBIC ACID\BIOTIN\MINERALS\NIACIN\RETINOL\TOCOPHEROL\VITAMIN B\VITAMIN D
     Indication: PREGNANCY
     Dosage: UNK
     Route: 064
     Dates: end: 2003
  2. PAXIL [Suspect]
     Active Substance: PAROXETINE HYDROCHLORIDE
     Indication: BIPOLAR DISORDER
     Dosage: 20 MG, QD
     Route: 064
     Dates: end: 2003
  3. MACRODANTIN [Concomitant]
     Active Substance: NITROFURANTOIN
     Indication: URINARY TRACT INFECTION
     Dosage: 50 MG, UNK
     Route: 064

REACTIONS (12)
  - Atelectasis [Unknown]
  - Viral upper respiratory tract infection [Unknown]
  - Foetal exposure during pregnancy [Unknown]
  - Exomphalos [Unknown]
  - Deformity [Unknown]
  - Emotional distress [Unknown]
  - Anhedonia [Unknown]
  - Anxiety [Unknown]
  - Bradycardia [Unknown]
  - Pain [Unknown]
  - Ileal atresia [Unknown]
  - Congenital umbilical hernia [Unknown]

NARRATIVE: CASE EVENT DATE: 20031112
